APPROVED DRUG PRODUCT: POTASSIUM CHLORIDE
Active Ingredient: POTASSIUM CHLORIDE
Strength: 10MEQ
Dosage Form/Route: CAPSULE, EXTENDED RELEASE;ORAL
Application: A077419 | Product #002 | TE Code: AB
Applicant: ACTAVIS LABORATORIES FL INC
Approved: Jun 2, 2008 | RLD: No | RS: Yes | Type: RX